FAERS Safety Report 8465072-6 (Version None)
Quarter: 2012Q2

REPORT INFORMATION
  Report Type: 
  Country: None (occurrence: None)
  Receive Date: 20120626
  Receipt Date: 20120618
  Transmission Date: 20120825
  Serious: Yes (Hospitalization)
  Sender: FDA-Public Use
  Company Number: US-BAYER-2011-062926

PATIENT
  Age: 16 Year
  Sex: Female
  Weight: 52 kg

DRUGS (13)
  1. YAZ [Suspect]
     Indication: MENSTRUATION IRREGULAR
  2. ZYRTEC [Concomitant]
  3. MOTRIN [Concomitant]
     Dosage: 800 MG, UNK
     Route: 048
  4. CLARITIN [Concomitant]
     Dosage: 5 MG, UNK
     Route: 048
  5. YAZ [Suspect]
     Indication: MIGRAINE
  6. PROTONIX [Concomitant]
     Dosage: 20 MG, UNK
  7. YAZ [Suspect]
     Indication: ACNE
     Dosage: UNK
     Route: 048
     Dates: start: 20081201, end: 20091001
  8. YASMIN [Suspect]
     Indication: DYSMENORRHOEA
     Dosage: UNK
  9. ZOFRAN [Concomitant]
  10. CLARITIN [Concomitant]
     Indication: MULTIPLE ALLERGIES
     Dosage: UNK
     Route: 048
     Dates: start: 20060830, end: 20090709
  11. PROPOXYPHENE NAPSYLATE W/ ACETAMINOPHEN [Concomitant]
  12. IBUPROFEN [Concomitant]
  13. IRON COMPLEX [Concomitant]
     Indication: ANAEMIA
     Dosage: UNK
     Route: 048
     Dates: start: 20060830, end: 20090701

REACTIONS (7)
  - PAIN [None]
  - POST-TRAUMATIC STRESS DISORDER [None]
  - PANCREATITIS [None]
  - BILIARY DYSKINESIA [None]
  - ANXIETY [None]
  - DEPRESSION [None]
  - POST CHOLECYSTECTOMY SYNDROME [None]
